FAERS Safety Report 9448416 (Version 1)
Quarter: 2013Q3

REPORT INFORMATION
  Report Type: Spontaneous
  Country: IT (occurrence: IT)
  Receive Date: 20130808
  Receipt Date: 20130808
  Transmission Date: 20140515
  Serious: Yes (Hospitalization)
  Sender: FDA-Public Use
  Company Number: PHHY2013IT082782

PATIENT
  Sex: Female

DRUGS (1)
  1. AMOXICILLIN-CLAVULANIC ACID [Suspect]
     Indication: OTITIS MEDIA ACUTE
     Dosage: 1 G, UNK
     Route: 048
     Dates: start: 20130627, end: 20130627

REACTIONS (4)
  - Asthenia [Recovering/Resolving]
  - Vertigo [Not Recovered/Not Resolved]
  - Balance disorder [Recovering/Resolving]
  - Nausea [Recovering/Resolving]
